FAERS Safety Report 24070643 (Version 1)
Quarter: 2024Q3

REPORT INFORMATION
  Report Type: Report from Study
  Country: US (occurrence: US)
  Receive Date: 20240710
  Receipt Date: 20240710
  Transmission Date: 20241016
  Serious: No
  Sender: ROCHE
  Company Number: US-ROCHE-3558286

PATIENT
  Age: 51 Year
  Sex: Female

DRUGS (5)
  1. VABYSMO [Suspect]
     Active Substance: FARICIMAB\FARICIMAB-SVOA
     Indication: Diabetic retinopathy
     Dosage: DOSE: 03/APR/2024
     Route: 050
  2. VABYSMO [Suspect]
     Active Substance: FARICIMAB\FARICIMAB-SVOA
     Indication: Vitreous degeneration
  3. VABYSMO [Suspect]
     Active Substance: FARICIMAB\FARICIMAB-SVOA
     Indication: Macular oedema
  4. TRESIBA [Concomitant]
     Active Substance: INSULIN DEGLUDEC
  5. LYRICA [Concomitant]
     Active Substance: PREGABALIN

REACTIONS (5)
  - Fatigue [Unknown]
  - Rhinorrhoea [Unknown]
  - Rash [Unknown]
  - Arthralgia [Unknown]
  - Nausea [Unknown]
